FAERS Safety Report 4598588-3 (Version None)
Quarter: 2005Q1

REPORT INFORMATION
  Report Type: 
  Country: None (occurrence: None)
  Receive Date: 20050304
  Receipt Date: 20050221
  Transmission Date: 20050727
  Serious: Yes (Other)
  Sender: FDA-Public Use
  Company Number: GB-ROCHE-396270

PATIENT
  Age: 92 Year
  Sex: Female
  Weight: 41.1 kg

DRUGS (9)
  1. TAMIFLU [Suspect]
     Indication: INFLUENZA
     Route: 048
     Dates: start: 20050126, end: 20050204
  2. DIGOXIN [Concomitant]
     Route: 048
  3. FOSAMAX [Concomitant]
     Route: 048
  4. FRUSEMIDE [Concomitant]
     Route: 048
  5. LACTULOSE [Concomitant]
     Dosage: 5 ML X3 TWICE A DAY.
     Route: 048
  6. PROMAZINE HCL [Concomitant]
     Route: 048
  7. PULMICORT [Concomitant]
     Dosage: 200 MCG TAKEN IN 2 PUFFS TWICE A DAY.
     Route: 055
  8. SENNA [Concomitant]
     Route: 048
  9. DICLOFENAC [Concomitant]
     Route: 048

REACTIONS (5)
  - CHROMATURIA [None]
  - DECREASED APPETITE [None]
  - MALAISE [None]
  - PROTEINURIA [None]
  - URINE ODOUR ABNORMAL [None]
